FAERS Safety Report 19577044 (Version 1)
Quarter: 2021Q3

REPORT INFORMATION
  Report Type: Spontaneous
  Country: US (occurrence: US)
  Receive Date: 20210719
  Receipt Date: 20210719
  Transmission Date: 20211014
  Serious: No
  Sender: FDA-Public Use
  Company Number: US-GLENMARK PHARMACEUTICALS-2021GMK053178

PATIENT

DRUGS (4)
  1. DOXYCYCLINE. [Concomitant]
     Active Substance: DOXYCYCLINE
     Indication: PERIORAL DERMATITIS
     Dosage: 100 MILLIGRAM, BID
     Route: 048
     Dates: start: 20210322
  2. METRONIDAZOLE. [Concomitant]
     Active Substance: METRONIDAZOLE
     Indication: PERIORAL DERMATITIS
     Dosage: UNK
     Route: 061
     Dates: start: 20210322
  3. MUPIROCIN OINTMENT USP, 2% [Suspect]
     Active Substance: MUPIROCIN
     Indication: PERIORAL DERMATITIS
     Dosage: UNK UNK, BID
     Route: 061
     Dates: start: 20210322, end: 20210406
  4. SOOLANTRA [Concomitant]
     Active Substance: IVERMECTIN
     Indication: PERIORAL DERMATITIS
     Dosage: UNK
     Route: 061
     Dates: start: 20210322

REACTIONS (3)
  - Vision blurred [Recovered/Resolved]
  - Product use in unapproved indication [Unknown]
  - Accidental exposure to product [Unknown]

NARRATIVE: CASE EVENT DATE: 202103
